FAERS Safety Report 5370456-9 (Version None)
Quarter: 2007Q2

REPORT INFORMATION
  Report Type: 
  Country: None (occurrence: None)
  Receive Date: 20070626
  Receipt Date: 20070402
  Transmission Date: 20071010
  Serious: No
  Sender: FDA-Public Use
  Company Number: US-AMGEN-KDL217962

PATIENT
  Sex: Female
  Weight: 59 kg

DRUGS (13)
  1. PROCRIT [Suspect]
     Indication: ANAEMIA
     Dates: start: 20061101
  2. ARANESP [Suspect]
     Dates: start: 20060701
  3. COREG [Concomitant]
  4. AMIODARONE [Concomitant]
  5. ANAGRELIDE HCL [Concomitant]
  6. LISINOPRIL [Concomitant]
  7. FOLIC ACID [Concomitant]
  8. LEVOTHROID [Concomitant]
  9. LASIX [Concomitant]
  10. ASPIRIN [Concomitant]
  11. CALCIUM CHLORIDE [Concomitant]
  12. FOSAMAX [Concomitant]
  13. FERROUS SULFATE [Concomitant]

REACTIONS (7)
  - ANOREXIA [None]
  - ASTHENIA [None]
  - CONFUSIONAL STATE [None]
  - FATIGUE [None]
  - HEAD DISCOMFORT [None]
  - SENSATION OF HEAVINESS [None]
  - WEIGHT DECREASED [None]
